FAERS Safety Report 6935691-4 (Version None)
Quarter: 2010Q3

REPORT INFORMATION
  Report Type: 
  Country: None (occurrence: None)
  Receive Date: 20100817
  Receipt Date: 20100802
  Transmission Date: 20110219
  Serious: Yes (Death, Other)
  Sender: FDA-Public Use
  Company Number: 2010AP001640

PATIENT
  Age: 42 Year
  Sex: Female

DRUGS (5)
  1. FLUOXETINE HCL [Suspect]
  2. MIRTAZAPINE [Suspect]
  3. VALPROIC ACID [Suspect]
  4. MORPHINE [Suspect]
  5. CODEINE SUL TAB [Suspect]

REACTIONS (6)
  - DRUG INTERACTION [None]
  - DRUG TOXICITY [None]
  - HEPATIC STEATOSIS [None]
  - NEPHROSCLEROSIS [None]
  - OBESITY [None]
  - SEROTONIN SYNDROME [None]
